FAERS Safety Report 14121954 (Version 1)
Quarter: 2017Q4

REPORT INFORMATION
  Report Type: Spontaneous
  Country: EG (occurrence: EG)
  Receive Date: 20171024
  Receipt Date: 20171024
  Transmission Date: 20180321
  Serious: Yes (Other)
  Sender: FDA-Public Use
  Company Number: PHHY2017EG154564

PATIENT
  Age: 45 Year
  Sex: Male

DRUGS (2)
  1. CURAM [Suspect]
     Active Substance: AMOXICILLIN\CLAVULANATE POTASSIUM
     Indication: TOOTH ABSCESS
     Route: 065
  2. CATAFLAM [Suspect]
     Active Substance: DICLOFENAC POTASSIUM
     Indication: TOOTH ABSCESS
     Dosage: 75 MG, UNK
     Route: 030
     Dates: start: 20171014, end: 20171014

REACTIONS (11)
  - Suffocation feeling [Recovered/Resolved]
  - Rash generalised [Recovered/Resolved]
  - Erythema [Recovered/Resolved]
  - Drug hypersensitivity [Recovered/Resolved]
  - Peripheral swelling [Recovered/Resolved]
  - Skin oedema [Unknown]
  - Urticaria [Unknown]
  - Swelling face [Recovered/Resolved]
  - Flushing [Unknown]
  - Chest discomfort [Unknown]
  - Skin swelling [Unknown]

NARRATIVE: CASE EVENT DATE: 20171014
